FAERS Safety Report 8374170-7 (Version None)
Quarter: 2012Q2

REPORT INFORMATION
  Report Type: 
  Country: None (occurrence: None)
  Receive Date: 20120518
  Receipt Date: 20120518
  Transmission Date: 20120825
  Serious: Yes (Other)
  Sender: FDA-Public Use
  Company Number: None

PATIENT
  Age: 60 Year
  Sex: Female
  Weight: 81.6475 kg

DRUGS (1)
  1. ATENOLOL [Suspect]
     Indication: HYPERTENSION
     Dosage: 1 TABLET EVERYDAY PO
     Route: 048
     Dates: start: 20101103, end: 20110507

REACTIONS (2)
  - CONFUSIONAL STATE [None]
  - HEART RATE DECREASED [None]
